FAERS Safety Report 4781514-1 (Version None)
Quarter: 2005Q3

REPORT INFORMATION
  Report Type: 
  Country: None (occurrence: None)
  Receive Date: 20050928
  Receipt Date: 20050926
  Transmission Date: 20060218
  Serious: Yes (Hospitalization)
  Sender: FDA-Public Use
  Company Number: AU-SANOFI-SYNTHELABO-F01200501953

PATIENT
  Sex: Male
  Weight: 62 kg

DRUGS (2)
  1. OXALIPLATIN [Suspect]
     Indication: OESOPHAGEAL CARCINOMA
     Route: 042
     Dates: start: 20040121, end: 20040121
  2. FLUOROURACIL [Suspect]
     Indication: OESOPHAGEAL CARCINOMA
     Route: 042
     Dates: start: 20040121, end: 20040122

REACTIONS (3)
  - ORAL INTAKE REDUCED [None]
  - STENT OCCLUSION [None]
  - WEIGHT DECREASED [None]
